FAERS Safety Report 8226490-4 (Version None)
Quarter: 2012Q1

REPORT INFORMATION
  Report Type: 
  Country: None (occurrence: None)
  Receive Date: 20120322
  Receipt Date: 20120309
  Transmission Date: 20120608
  Serious: Yes (Hospitalization)
  Sender: FDA-Public Use
  Company Number: CA-PAR PHARMACEUTICAL, INC-2012SCPR004275

PATIENT

DRUGS (2)
  1. RISPERIDONE [Suspect]
     Indication: SEXUALLY INAPPROPRIATE BEHAVIOUR
     Dosage: 0.5-1MG, UNKNOWN
     Route: 065
  2. MEDROXYPROGESTERONE [Concomitant]
     Indication: SEXUALLY INAPPROPRIATE BEHAVIOUR
     Dosage: 100-200 MG, UNKNOWN
     Route: 065

REACTIONS (2)
  - SEXUALLY INAPPROPRIATE BEHAVIOUR [None]
  - CONDITION AGGRAVATED [None]
